FAERS Safety Report 7537672-9 (Version None)
Quarter: 2011Q2

REPORT INFORMATION
  Report Type: 
  Country: None (occurrence: None)
  Receive Date: 20110609
  Receipt Date: 20071008
  Transmission Date: 20111010
  Serious: Yes (Hospitalization)
  Sender: FDA-Public Use
  Company Number: PHEH2007US11266

PATIENT
  Sex: Female
  Weight: 68 kg

DRUGS (9)
  1. FLAGYL [Concomitant]
  2. LISINOPRIL [Concomitant]
  3. CATAPRES /USA/ [Concomitant]
     Dosage: UNK
  4. HYDROXYUREA [Concomitant]
  5. MINOXIDIL [Concomitant]
  6. LANTUS [Concomitant]
  7. METOLAZONE [Concomitant]
  8. NADOLOL [Concomitant]
  9. EXJADE [Suspect]
     Indication: HAEMOSIDEROSIS
     Dosage: 1500 MG, QD
     Route: 048
     Dates: start: 20060906

REACTIONS (4)
  - COMPUTERISED TOMOGRAM ABNORMAL [None]
  - SICKLE CELL ANAEMIA WITH CRISIS [None]
  - OEDEMA PERIPHERAL [None]
  - CLOSTRIDIUM DIFFICILE COLITIS [None]
